FAERS Safety Report 16026731 (Version 1)
Quarter: 2019Q1

REPORT INFORMATION
  Report Type: Report from Study
  Country: IT (occurrence: IT)
  Receive Date: 20190303
  Receipt Date: 20190303
  Transmission Date: 20190418
  Serious: Yes (Hospitalization)
  Sender: FDA-Public Use
  Company Number: IT-ACCORD-109991

PATIENT
  Age: 55 Year
  Sex: Male

DRUGS (6)
  1. ONDANSETRONE ACCORD HEALTHCARE [Concomitant]
  2. CALCIUM LEVOFOLINATE TEVA [Concomitant]
     Active Substance: LEVOLEUCOVORIN CALCIUM
  3. FLUOROURACIL. [Suspect]
     Active Substance: FLUOROURACIL
     Indication: ADENOCARCINOMA OF COLON
     Dosage: STRENGTH 50MG/ML,800 MG FROM 25-JUN-2018 TO 25-JUN-2018 TAKEN
     Route: 042
     Dates: start: 20180626, end: 20180626
  4. DEXAMETHASONE PHOSPHATE HOSPIRA [Concomitant]
     Active Substance: DEXAMETHASONE PHOSPHATE
     Dosage: STRENGTH 4 MG / ML
  5. FLUOROURACILE [Suspect]
     Active Substance: FLUOROURACIL
     Indication: ADENOCARCINOMA OF COLON
     Route: 042
     Dates: start: 20180625, end: 20180625
  6. OXALIPLATIN. [Suspect]
     Active Substance: OXALIPLATIN
     Indication: ADENOCARCINOMA OF COLON
     Route: 042
     Dates: start: 20180625, end: 20180625

REACTIONS (5)
  - Asthenia [Unknown]
  - Hyperpyrexia [Unknown]
  - Diarrhoea [Unknown]
  - Abdominal pain [Unknown]
  - Leukopenia [Unknown]

NARRATIVE: CASE EVENT DATE: 20180702
